FAERS Safety Report 4304123-7 (Version None)
Quarter: 2004Q1

REPORT INFORMATION
  Report Type: 
  Country: None (occurrence: None)
  Receive Date: 20040224
  Receipt Date: 20040211
  Transmission Date: 20041129
  Serious: Yes (Hospitalization, Disabling)
  Sender: FDA-Public Use
  Company Number: 9950045

PATIENT
  Age: 66 Year
  Sex: Male

DRUGS (5)
  1. DOXAZOSIN MESYLATE [Suspect]
     Indication: BENIGN PROSTATIC HYPERPLASIA
     Dosage: 2 MG (DAILY), ORAL
     Route: 048
     Dates: start: 19990501
  2. CAPIVEN (HESPERIDIN, DIOSMIN) [Concomitant]
  3. ALL OTHER THERAPEUTIC PRODUCTS [Concomitant]
  4. METFORMIN [Concomitant]
  5. INDOMETHACIN [Concomitant]

REACTIONS (8)
  - ABASIA [None]
  - ARTHRALGIA [None]
  - JOINT DISLOCATION [None]
  - LEG AMPUTATION [None]
  - NOSOCOMIAL INFECTION [None]
  - OSTEOARTHRITIS [None]
  - POST PROCEDURAL FISTULA [None]
  - WOUND SECRETION [None]
